FAERS Safety Report 15081299 (Version 2)
Quarter: 2018Q3

REPORT INFORMATION
  Report Type: Spontaneous
  Country: US (occurrence: US)
  Receive Date: 20180628
  Receipt Date: 20180724
  Transmission Date: 20181010
  Serious: Yes (Other)
  Sender: FDA-Public Use
  Company Number: US-ICU MEDICAL, INC.-ICU2018US00015

PATIENT

DRUGS (7)
  1. BUPIVACAINE. [Concomitant]
     Active Substance: BUPIVACAINE
     Indication: PREOPERATIVE CARE
     Dosage: 11.25 MILLIGRAM
  2. MIDAZOLAM [Concomitant]
     Active Substance: MIDAZOLAM HYDROCHLORIDE
     Indication: PREOPERATIVE CARE
     Dosage: 1.5 MILLIGRAM
     Route: 042
  3. FENTANYL. [Concomitant]
     Active Substance: FENTANYL
     Indication: PREOPERATIVE CARE
     Dosage: 50 MICROGRAM
  4. FENTANYL. [Concomitant]
     Active Substance: FENTANYL
     Dosage: 20 MICROGRAM
  5. HYDROCORTISONE                     /00028602/ [Concomitant]
     Active Substance: HYDROCORTISONE
     Indication: PREOPERATIVE CARE
     Dosage: 100 MILLIGRAM
     Route: 042
  6. 1.5% GLYCINE IRRIGATION USP (3000 ML) [Suspect]
     Active Substance: GLYCINE
     Indication: TRANSURETHRAL PROSTATECTOMY
     Dosage: UNK, UNK
  7. RINGERS LACTATE [Concomitant]
     Active Substance: CALCIUM CHLORIDE\POTASSIUM CHLORIDE\SODIUM LACTATE
     Indication: PREOPERATIVE CARE
     Dosage: 2 LITER

REACTIONS (3)
  - Cyanopsia [Recovered/Resolved]
  - Vision blurred [Recovered/Resolved]
  - Hyponatraemia [Recovered/Resolved]
